FAERS Safety Report 4984566-9 (Version None)
Quarter: 2006Q2

REPORT INFORMATION
  Report Type: 
  Country: None (occurrence: None)
  Receive Date: 20060427
  Receipt Date: 20060208
  Transmission Date: 20061013
  Serious: No
  Sender: FDA-Public Use
  Company Number: US-GLAXOSMITHKLINE-A0592878A

PATIENT
  Age: 54 Year
  Sex: Female

DRUGS (15)
  1. DEXTROAMPHETAMINE [Suspect]
     Dosage: 5MG UNKNOWN
     Route: 065
     Dates: start: 20051101, end: 20060120
  2. PROVIGIL [Concomitant]
  3. FOCALIN [Concomitant]
  4. ZYRTEC [Concomitant]
  5. FLONASE [Concomitant]
  6. PREVACID [Concomitant]
  7. LEVOTHYROXINE SODIUM [Concomitant]
  8. LIPITOR [Concomitant]
  9. ZOLOFT [Concomitant]
  10. CYMBALTA [Concomitant]
  11. IMITREX [Concomitant]
  12. MAXALT [Concomitant]
  13. FIORICET [Concomitant]
  14. TYLENOL W/ CODEINE NO. 3 [Concomitant]
  15. BOTOX [Concomitant]

REACTIONS (1)
  - DRUG INEFFECTIVE [None]
